FAERS Safety Report 11972612 (Version 7)
Quarter: 2016Q4

REPORT INFORMATION
  Report Type: Spontaneous
  Country: US (occurrence: US)
  Receive Date: 20160128
  Receipt Date: 20161221
  Transmission Date: 20170206
  Serious: Yes (Hospitalization)
  Sender: FDA-Public Use
  Company Number: US-ACTELION-A-NJ2016-130446

PATIENT
  Age: 62 Year
  Sex: Male

DRUGS (6)
  1. VELETRI [Suspect]
     Active Substance: EPOPROSTENOL
     Dosage: 6 NG/KG, PER MIN
     Route: 042
  2. VENTAVIS [Suspect]
     Active Substance: ILOPROST
     Indication: PULMONARY ARTERIAL HYPERTENSION
     Dosage: 5 MCG, 6-9X/DAILY
     Route: 055
     Dates: start: 20160328
  3. ADEMPAS [Suspect]
     Active Substance: RIOCIGUAT
     Dosage: 2.5 MG, TID
     Route: 048
  4. ADEMPAS [Suspect]
     Active Substance: RIOCIGUAT
     Indication: PULMONARY ARTERIAL HYPERTENSION
     Dosage: 1.5 MG, TID
     Route: 048
     Dates: start: 20150922
  5. ADEMPAS [Suspect]
     Active Substance: RIOCIGUAT
     Dosage: 2.0 MG, TID
     Route: 048
  6. VELETRI [Suspect]
     Active Substance: EPOPROSTENOL
     Indication: PULMONARY ARTERIAL HYPERTENSION
     Dosage: 7 NG/KG, PER MIN
     Route: 042
     Dates: start: 20160102

REACTIONS (24)
  - Renal failure [Recovering/Resolving]
  - Paralysis [Unknown]
  - Muscular weakness [Unknown]
  - Wound haemorrhage [Recovering/Resolving]
  - Headache [Not Recovered/Not Resolved]
  - Petechiae [Recovering/Resolving]
  - Pneumonia [Unknown]
  - Anaemia [Recovering/Resolving]
  - Nausea [Unknown]
  - Impaired healing [Recovering/Resolving]
  - Blood blister [Recovering/Resolving]
  - Catheter site haemorrhage [Unknown]
  - Retching [Recovering/Resolving]
  - Haemorrhage [Recovering/Resolving]
  - Thrombosis [Unknown]
  - Tremor [Unknown]
  - Haematochezia [Recovering/Resolving]
  - Diarrhoea [Recovering/Resolving]
  - Fluid retention [Recovering/Resolving]
  - Oedema peripheral [Unknown]
  - Rash [Recovering/Resolving]
  - Pleural effusion [Unknown]
  - Epistaxis [Recovering/Resolving]
  - Vomiting [Recovering/Resolving]

NARRATIVE: CASE EVENT DATE: 20160117
